FAERS Safety Report 9347849 (Version 1)
Quarter: 2013Q2

REPORT INFORMATION
  Report Type: Spontaneous
  Country: US (occurrence: US)
  Receive Date: 20130614
  Receipt Date: 20130614
  Transmission Date: 20140414
  Serious: Yes (Other)
  Sender: FDA-Public Use
  Company Number: US-TEVA-411512USA

PATIENT
  Sex: Female

DRUGS (1)
  1. CARBAMAZEPINE [Suspect]

REACTIONS (6)
  - Corneal disorder [Unknown]
  - Visual impairment [Unknown]
  - Chest pain [Unknown]
  - Dermatitis [Unknown]
  - Osteoarthritis [Unknown]
  - Chronic obstructive pulmonary disease [Unknown]
